FAERS Safety Report 8891161 (Version 2)
Quarter: 2012Q4

REPORT INFORMATION
  Report Type: 
  Country: US (occurrence: US)
  Receive Date: 20121107
  Receipt Date: 20121219
  Transmission Date: 20130627
  Serious: Yes (Death, Other)
  Sender: FDA-Public Use
  Company Number: US-BAYER-2012-116055

PATIENT
  Age: 68 Year
  Sex: Female
  Weight: 83 kg

DRUGS (39)
  1. TRASYLOL [Suspect]
     Indication: MITRAL VALVE REPAIR
     Dosage: Initial test dose 2 million units pump prime, loading dose 200ml, followed by 50ml/hour
     Route: 042
     Dates: start: 20041227, end: 20041227
  2. TRASYLOL [Suspect]
     Indication: ATRIAL SEPTAL DEFECT REPAIR
  3. TRASYLOL [Suspect]
     Indication: ABSCESS DRAINAGE
  4. PLASMA [Concomitant]
     Dosage: 4 u, UNK
  5. PLATELETS, HUMAN BLOOD [Concomitant]
     Dosage: 12 pack
  6. PACKED RED BLOOD CELLS [Concomitant]
     Dosage: 4 u, UNK
  7. EPINEPHRINE [Concomitant]
     Dosage: UNK
     Dates: start: 20041127
  8. EPINEPHRINE [Concomitant]
     Dosage: UNK
     Dates: start: 20041227
  9. LEVOPHED [Concomitant]
     Dosage: UNK
     Dates: start: 20041127
  10. VASOPRESSIN [Concomitant]
     Dosage: UNK
     Dates: start: 20041127
  11. LASIX [Concomitant]
  12. PLAVIX [Concomitant]
  13. ZOCOR [Concomitant]
  14. VICODIN [Concomitant]
  15. TETRACYCLINE [Concomitant]
  16. ACETYLSALICYLIC ACID (} 100 MG) [Concomitant]
  17. ACYCLOVIR [ACICLOVIR] [Concomitant]
  18. ACYCLOVIR [ACICLOVIR] [Concomitant]
  19. COZAAR [Concomitant]
  20. FENTANYL [Concomitant]
     Dosage: UNK
     Dates: start: 20041127, end: 20041127
  21. VERSED [Concomitant]
     Dosage: UNK
     Dates: start: 20041127, end: 20041127
  22. ZINACEF [Concomitant]
     Dosage: 1.5 g, UNK
     Dates: start: 20041127, end: 20041127
  23. MANNITOL [Concomitant]
     Dosage: UNK
     Dates: start: 20041127, end: 20041127
  24. PROCARDIA [Concomitant]
  25. KLOR-CON [Concomitant]
  26. K-DUR [Concomitant]
  27. INSULIN [Concomitant]
     Dosage: 80 u, morning
  28. INSULIN [Concomitant]
     Dosage: 40 u, night
  29. NITROGLYCERINE [Concomitant]
  30. PROTAMINE [Concomitant]
     Dosage: 400 mg, UNK
     Dates: start: 20041127, end: 20041127
  31. ARIMIDEX [Concomitant]
  32. CONCERTA [Concomitant]
  33. TEMAZEPAM [Concomitant]
  34. DIGITEK [Concomitant]
  35. GLUCOPHAGE [Concomitant]
  36. DOPAMINE [Concomitant]
     Dosage: UNK
     Dates: start: 20041127, end: 20041127
  37. VECURONIUM [Concomitant]
     Dosage: UNK
     Dates: start: 20041127, end: 20041127
  38. NEOSYNEPHRINE [Concomitant]
     Dosage: UNK
     Dates: start: 20041127
  39. HEPARIN [Concomitant]
     Dosage: UNK
     Dates: start: 20041127, end: 20041127

REACTIONS (5)
  - Cardiac failure congestive [Fatal]
  - Renal failure acute [None]
  - Renal tubular necrosis [None]
  - Off label use [None]
  - Renal failure chronic [None]
